FAERS Safety Report 4271976-0 (Version None)
Quarter: 2004Q1

REPORT INFORMATION
  Report Type: 
  Country: None (occurrence: None)
  Receive Date: 20040113
  Receipt Date: 20031229
  Transmission Date: 20041129
  Serious: Yes (Hospitalization)
  Sender: FDA-Public Use
  Company Number: AU-JNJFOC-20040101542

PATIENT
  Age: 49 Year
  Sex: Female

DRUGS (2)
  1. TRAMADOL HCL [Suspect]
     Indication: ABDOMINAL PAIN
     Dosage: 100 MG, 1 IN 1 DAY, INTRAVENOUS
     Route: 042
     Dates: start: 20031125, end: 20031125
  2. BUSCOPAN (HYOSCINE BUTYLBROMIDE) INJECTION [Suspect]
     Indication: ABDOMINAL PAIN
     Dosage: 20 MG, 1 IN 1 DAY, INTRAVENOUS
     Route: 042
     Dates: start: 20031125, end: 20031125

REACTIONS (4)
  - CHEST PAIN [None]
  - DRUG INTERACTION [None]
  - ELECTROCARDIOGRAM ABNORMAL [None]
  - ELECTROCARDIOGRAM ST SEGMENT DEPRESSION [None]
